FAERS Safety Report 20931123 (Version 1)
Quarter: 2022Q2

REPORT INFORMATION
  Report Type: Report from Study
  Country: MX (occurrence: MX)
  Receive Date: 20220608
  Receipt Date: 20220608
  Transmission Date: 20220720
  Serious: Yes (Other)
  Sender: FDA-Public Use
  Company Number: MX-Merck Healthcare KGaA-9326327

PATIENT
  Sex: Male

DRUGS (1)
  1. CETUXIMAB [Suspect]
     Active Substance: CETUXIMAB
     Indication: Colorectal cancer
     Dosage: UNK UNK, 2/M (ONCE IN TWO WEEKS)
     Route: 042
     Dates: start: 20220103, end: 20220429

REACTIONS (3)
  - Anaemia [Recovering/Resolving]
  - Weight decreased [Recovering/Resolving]
  - Off label use [Unknown]
